FAERS Safety Report 9652874 (Version 3)
Quarter: 2013Q4

REPORT INFORMATION
  Report Type: Spontaneous
  Country: FR (occurrence: FR)
  Receive Date: 20131029
  Receipt Date: 20131108
  Transmission Date: 20140711
  Serious: Yes (Other)
  Sender: FDA-Public Use
  Company Number: FR-PFIZER INC-2013307004

PATIENT
  Sex: Female

DRUGS (5)
  1. TAHOR [Suspect]
     Dosage: 20 MG, DAILY IN THE EVENING
     Route: 048
  2. AMLOR [Suspect]
     Dosage: 5 MG, DAILY IN THE MORNING
     Route: 048
  3. OLMETEC [Suspect]
     Dosage: 10 MG, DAILY
     Route: 048
  4. KARDEGIC [Suspect]
     Indication: VIRAL PERICARDITIS
     Dosage: 160 MG, UNK
     Route: 048
  5. LYSANXIA [Concomitant]

REACTIONS (3)
  - Viral pericarditis [Unknown]
  - Transient ischaemic attack [Recovered/Resolved]
  - Effusion [Unknown]
